FAERS Safety Report 4993853-X (Version None)
Quarter: 2006Q2

REPORT INFORMATION
  Report Type: 
  Country: None (occurrence: None)
  Receive Date: 20060505
  Receipt Date: 20050826
  Transmission Date: 20061013
  Serious: Yes (Hospitalization, Disabling, Other)
  Sender: FDA-Public Use
  Company Number: US-MERCK-0508USA04798

PATIENT
  Age: 63 Year
  Sex: Male
  Weight: 98 kg

DRUGS (13)
  1. VIOXX [Suspect]
     Indication: MYALGIA
     Route: 048
     Dates: start: 20020307, end: 20030417
  2. VIOXX [Suspect]
     Route: 048
     Dates: start: 20030417, end: 20040913
  3. VIOXX [Suspect]
     Indication: ARTHRITIS
     Route: 048
     Dates: start: 20020307, end: 20030417
  4. VIOXX [Suspect]
     Route: 048
     Dates: start: 20030417, end: 20040913
  5. PRAVACHOL [Concomitant]
     Indication: HYPERLIPIDAEMIA
     Route: 048
     Dates: start: 20011214, end: 20050101
  6. ACTOS [Concomitant]
     Indication: DIABETES MELLITUS
     Route: 048
     Dates: start: 20010101, end: 20050101
  7. GUAIFENESIN AND PSEUDOEPHEDRINE HYDROCHLORIDE [Concomitant]
     Route: 065
  8. OMNICEF [Concomitant]
     Route: 065
  9. NEURONTIN [Concomitant]
     Route: 065
  10. NITROSTAT [Concomitant]
     Route: 065
  11. HYDROCODONE BITARTRATE + ACETAMINOPHEN [Concomitant]
     Route: 065
     Dates: start: 20040101
  12. ASPIRIN [Concomitant]
     Route: 065
     Dates: start: 20020102, end: 20040302
  13. ASPIRIN [Concomitant]
     Route: 065
     Dates: start: 20040302

REACTIONS (8)
  - ARTHROPATHY [None]
  - ASPARTATE AMINOTRANSFERASE INCREASED [None]
  - CARPAL TUNNEL SYNDROME [None]
  - CORONARY ARTERY DISEASE [None]
  - CORONARY ARTERY OCCLUSION [None]
  - CORONARY ARTERY STENOSIS [None]
  - HYPERTENSION [None]
  - MYOCARDIAL INFARCTION [None]
